FAERS Safety Report 4457475-1 (Version None)
Quarter: 2004Q3

REPORT INFORMATION
  Report Type: 
  Country: None (occurrence: None)
  Receive Date: 20040922
  Receipt Date: 20040912
  Transmission Date: 20050211
  Serious: Yes (Other)
  Sender: FDA-Public Use
  Company Number: 2004066990

PATIENT
  Sex: Female

DRUGS (3)
  1. DILANTIN [Suspect]
     Indication: ILL-DEFINED DISORDER
  2. VITAMINS (VITAMINS) [Concomitant]
  3. TOCOPHEROL CONCENTRATE CAP [Concomitant]

REACTIONS (2)
  - AMNESIA [None]
  - DEMENTIA ALZHEIMER'S TYPE [None]
